FAERS Safety Report 5703674-8 (Version None)
Quarter: 2008Q2

REPORT INFORMATION
  Report Type: 
  Country: None (occurrence: None)
  Receive Date: 20080413
  Receipt Date: 20080404
  Transmission Date: 20081010
  Serious: Yes (Other)
  Sender: FDA-Public Use
  Company Number: PHHY2008GB05070

PATIENT

DRUGS (3)
  1. EXELON [Suspect]
     Dosage: 1.5 MG
     Route: 048
  2. CITALOPRAM HYDROBROMIDE [Suspect]
  3. QUETIAPINE FUMARATE [Suspect]

REACTIONS (1)
  - NEUROLEPTIC MALIGNANT SYNDROME [None]
